FAERS Safety Report 25985967 (Version 2)
Quarter: 2025Q4

REPORT INFORMATION
  Report Type: Spontaneous
  Country: JP (occurrence: JP)
  Receive Date: 20251101
  Receipt Date: 20251120
  Transmission Date: 20260118
  Serious: Yes (Death, Other)
  Sender: UNITED THERAPEUTICS
  Company Number: JP-UNITED THERAPEUTICS-UNT-2025-037225

PATIENT
  Age: 78 Year
  Sex: Male

DRUGS (2)
  1. TREPROSTINIL [Suspect]
     Active Substance: TREPROSTINIL
     Indication: Pulmonary arterial hypertension
     Dosage: UNK
     Dates: start: 20250507, end: 20251027
  2. TREPROSTINIL [Suspect]
     Active Substance: TREPROSTINIL
     Indication: Interstitial lung disease

REACTIONS (1)
  - Right ventricular failure [Fatal]

NARRATIVE: CASE EVENT DATE: 20250101
